FAERS Safety Report 6105658-7 (Version None)
Quarter: 2009Q1

REPORT INFORMATION
  Report Type: 
  Country: None (occurrence: None)
  Receive Date: 20090306
  Receipt Date: 20090223
  Transmission Date: 20090719
  Serious: Yes (Other)
  Sender: FDA-Public Use
  Company Number: BE-ELI_LILLY_AND_COMPANY-BE200902006389

PATIENT
  Sex: Male
  Weight: 75 kg

DRUGS (5)
  1. CIALIS [Suspect]
     Indication: ERECTILE DYSFUNCTION
     Dosage: 5 MG, DAILY (1/D)
     Route: 048
     Dates: start: 20081201, end: 20081201
  2. ZESTRIL [Concomitant]
     Indication: HYPERTENSION
     Dosage: 20 MG, DAILY (1/D)
     Route: 048
  3. GLURENORM [Concomitant]
     Indication: DIABETES MELLITUS
     Dosage: UNK , 3/D
     Route: 048
  4. GLUCOPHAGE [Concomitant]
     Indication: DIABETES MELLITUS
     Dosage: 850 MG, 3/D
     Route: 048
  5. GAVISCON /00237601/ [Concomitant]
     Indication: OESOPHAGITIS
     Dosage: UNK, AS NEEDED
     Route: 065

REACTIONS (1)
  - SYNCOPE [None]
